FAERS Safety Report 4977748-3 (Version None)
Quarter: 2006Q2

REPORT INFORMATION
  Report Type: 
  Country: None (occurrence: None)
  Receive Date: 20060420
  Receipt Date: 20060406
  Transmission Date: 20061013
  Serious: Yes (Death)
  Sender: FDA-Public Use
  Company Number: US-AMGEN-US175731

PATIENT

DRUGS (1)
  1. PROCRIT [Suspect]
     Indication: DIALYSIS

REACTIONS (1)
  - DEATH [None]
